FAERS Safety Report 22227641 (Version 2)
Quarter: 2023Q4

REPORT INFORMATION
  Report Type: Spontaneous
  Country: IT (occurrence: IT)
  Receive Date: 20230419
  Receipt Date: 20231027
  Transmission Date: 20240110
  Serious: Yes (Hospitalization, Other)
  Sender: FDA-Public Use
  Company Number: IT-SUN PHARMACEUTICAL INDUSTRIES LTD-2023R1-385020

PATIENT
  Age: 72 Year
  Sex: Male

DRUGS (2)
  1. CLONAZEPAM [Suspect]
     Active Substance: CLONAZEPAM
     Indication: Dyssomnia
     Dosage: 0.5 MILLIGRAM
     Route: 065
  2. MELATONIN [Suspect]
     Active Substance: MELATONIN
     Indication: Dyssomnia
     Dosage: 2 MILLIGRAM
     Route: 065

REACTIONS (1)
  - Drug ineffective [Unknown]
